FAERS Safety Report 24558524 (Version 5)
Quarter: 2025Q2

REPORT INFORMATION
  Report Type: Report from Study
  Country: BR (occurrence: BR)
  Receive Date: 20241029
  Receipt Date: 20250409
  Transmission Date: 20250717
  Serious: No
  Sender: JOHNSON AND JOHNSON
  Company Number: BR-JNJFOC-20241043291

PATIENT
  Age: 66 Year
  Sex: Female
  Weight: 80 kg

DRUGS (2)
  1. SIMPONI [Suspect]
     Active Substance: GOLIMUMAB
     Indication: Ankylosing spondylitis
     Dosage: STRENGTH: 50.00 MG / 0.50 ML
     Route: 058
     Dates: start: 20240809
  2. SIMPONI [Suspect]
     Active Substance: GOLIMUMAB
     Indication: Rheumatoid arthritis

REACTIONS (4)
  - Inappropriate schedule of product administration [Unknown]
  - Device issue [Unknown]
  - Product leakage [Unknown]
  - Off label use [Unknown]

NARRATIVE: CASE EVENT DATE: 20241020
